FAERS Safety Report 13942901 (Version 1)
Quarter: 2017Q3

REPORT INFORMATION
  Report Type: Other
  Country: GB (occurrence: US)
  Receive Date: 20170906
  Receipt Date: 20170906
  Transmission Date: 20171128
  Serious: Yes (Life-Threatening, Hospitalization, Other)
  Sender: FDA-Public Use
  Company Number: US-INTERNATIONAL MEDICATION SYSTEMS, LIMITED-2025664

PATIENT
  Age: 30 Year
  Sex: Female
  Weight: 73.2 kg

DRUGS (9)
  1. EPINEPHRINE 1:200,000 [Concomitant]
     Route: 008
  2. BUPIVACAINE 0.0625% [Concomitant]
     Route: 008
  3. 3% CHLOROPROCAINE [Suspect]
     Active Substance: CHLOROPROCAINE
     Route: 008
  4. SUXAMETHONIUM [Concomitant]
     Active Substance: SUCCINYLCHOLINE
  5. FENTANYL 2 MCG/ML [Concomitant]
     Route: 008
  6. LIDOCAINE 2% [Suspect]
     Active Substance: LIDOCAINE
     Indication: EPIDURAL ANALGESIA
     Route: 008
  7. HYDROGEN CARBONATE 0.1 MEQ/ML [Concomitant]
     Route: 008
  8. PROPOFOL. [Concomitant]
     Active Substance: PROPOFOL
  9. OXYGEN 100% BY SEALED FACEMASK [Concomitant]

REACTIONS (7)
  - Caesarean section [None]
  - Maternal exposure during delivery [None]
  - Type I hypersensitivity [Recovered/Resolved]
  - Anaesthetic complication [None]
  - Oxygen saturation decreased [None]
  - Anaphylactic reaction [None]
  - Maternal exposure during pregnancy [Unknown]
